FAERS Safety Report 9835126 (Version 1)
Quarter: 2014Q1

REPORT INFORMATION
  Report Type: Spontaneous
  Country: US (occurrence: US)
  Receive Date: 20140122
  Receipt Date: 20140122
  Transmission Date: 20141002
  Serious: No
  Sender: FDA-Public Use
  Company Number: US-BRISTOL-MYERS SQUIBB COMPANY-19802370

PATIENT
  Age: 82 Year
  Sex: Female
  Weight: 58.96 kg

DRUGS (5)
  1. ELIQUIS [Suspect]
     Indication: ATRIAL FIBRILLATION
     Dosage: MONDAYS, WEDNESDAYS AND FRIDAYS;TOOK HALF A TABLET ON THE OTHER DAYS.
     Dates: start: 20130722
  2. COUMADIN [Suspect]
     Indication: ATRIAL FIBRILLATION
     Dosage: TOOK 5MG ON MONDAYS, WEDNESDAYS AND FRIDAYS, AND I TOOK HALF A TABLET ON THE OTHER DAYS.^
  3. BYSTOLIC [Concomitant]
     Indication: BLOOD PRESSURE
  4. BENICAR [Concomitant]
  5. DILTIAZEM ER [Concomitant]

REACTIONS (1)
  - Sciatica [Recovered/Resolved]
